FAERS Safety Report 14545238 (Version 1)
Quarter: 2018Q1

REPORT INFORMATION
  Report Type: Spontaneous
  Country: BG (occurrence: BG)
  Receive Date: 20180218
  Receipt Date: 20180218
  Transmission Date: 20180509
  Serious: Yes (Other)
  Sender: FDA-Public Use
  Company Number: BG-TEVA-2018-BG-858090

PATIENT
  Age: 70 Year
  Sex: Male

DRUGS (9)
  1. MIDAZOLAM [Suspect]
     Active Substance: MIDAZOLAM HYDROCHLORIDE
     Indication: INDUCTION OF ANAESTHESIA
     Dosage: GIVEN WHENEVER NECESSARY DURING SURGICAL PROCEDURE
     Route: 065
  2. PROPOFOL. [Suspect]
     Active Substance: PROPOFOL
     Indication: INDUCTION OF ANAESTHESIA
     Dosage: GIVEN WHENEVER NECESSARY DURING SURGICAL PROCEDURE
     Route: 065
  3. CARBAMAZEPINE. [Concomitant]
     Active Substance: CARBAMAZEPINE
     Indication: CONVULSION PROPHYLAXIS
     Dosage: 2 X 200MG
     Route: 065
  4. PROPOFOL. [Suspect]
     Active Substance: PROPOFOL
     Indication: INDUCTION OF ANAESTHESIA
     Dosage: 2MG/KG
     Route: 065
  5. ATRACURIUM [Suspect]
     Active Substance: ATRACURIUM
     Indication: INDUCTION OF ANAESTHESIA
     Dosage: 0.6MG/KG
     Route: 065
  6. SEVOFLURANE. [Suspect]
     Active Substance: SEVOFLURANE
     Indication: MAINTENANCE OF ANAESTHESIA
     Route: 065
  7. FENTANYL. [Suspect]
     Active Substance: FENTANYL
     Indication: INDUCTION OF ANAESTHESIA
     Route: 065
  8. MIDAZOLAM [Suspect]
     Active Substance: MIDAZOLAM HYDROCHLORIDE
     Indication: INDUCTION OF ANAESTHESIA
     Route: 065
  9. SUCCINYLCHOLINE CHLORIDE. [Suspect]
     Active Substance: SUCCINYLCHOLINE CHLORIDE
     Indication: ANAESTHESIA
     Dosage: 1.1MG/KG
     Route: 065

REACTIONS (1)
  - Trigemino-cardiac reflex [Recovered/Resolved]
